FAERS Safety Report 6402608-0 (Version None)
Quarter: 2009Q4

REPORT INFORMATION
  Report Type: 
  Country: None (occurrence: None)
  Receive Date: 20091009
  Receipt Date: 20090930
  Transmission Date: 20100525
  Serious: Yes (Hospitalization)
  Sender: FDA-Public Use
  Company Number: ADR34012009

PATIENT
  Age: 18 Year
  Sex: Female

DRUGS (5)
  1. CIPROFLOXACIN [Suspect]
     Indication: CYSTIC FIBROSIS
     Dosage: 2 G
     Route: 048
  2. CIPROFLOXACIN [Suspect]
     Indication: DYSPNOEA
     Dosage: 2 G
     Route: 048
  3. CIPROFLOXACIN [Suspect]
     Indication: INFECTION
     Dosage: 2 G
     Route: 048
  4. CIPROFLOXACIN [Suspect]
     Indication: RHINITIS
     Dosage: 2 G
     Route: 048
  5. RIFAMPICIN [Concomitant]

REACTIONS (6)
  - ACTIVATED PARTIAL THROMBOPLASTIN TIME PROLONGED [None]
  - COAGULOPATHY [None]
  - DRUG TOXICITY [None]
  - INTERNATIONAL NORMALISED RATIO INCREASED [None]
  - TUBULOINTERSTITIAL NEPHRITIS [None]
  - VOMITING [None]
